FAERS Safety Report 15170063 (Version 1)
Quarter: 2018Q3

REPORT INFORMATION
  Report Type: Spontaneous
  Country: US (occurrence: US)
  Receive Date: 20180720
  Receipt Date: 20180720
  Transmission Date: 20181010
  Serious: No
  Sender: FDA-Public Use
  Company Number: US-PFIZER INC-2018291499

PATIENT
  Sex: Male

DRUGS (2)
  1. LYRICA [Suspect]
     Active Substance: PREGABALIN
     Indication: HYPOAESTHESIA
  2. LYRICA [Suspect]
     Active Substance: PREGABALIN
     Indication: NEURALGIA
     Dosage: 300MG CAPSULE, 1 CAPSULE IN THE MORNING, 1:00?2:00 IN THE AFTERNOON AND 8:00?9:00 AT NIGHT BY MOUTH
     Route: 048

REACTIONS (4)
  - Neuralgia [Unknown]
  - Drug dose omission [Unknown]
  - Prescribed overdose [Unknown]
  - Drug ineffective [Unknown]
